FAERS Safety Report 5920884-5 (Version None)
Quarter: 2008Q4

REPORT INFORMATION
  Report Type: 
  Country: None (occurrence: None)
  Receive Date: 20081015
  Receipt Date: 20081015
  Transmission Date: 20090506
  Serious: Yes (Life-Threatening)
  Sender: FDA-Public Use
  Company Number: None

PATIENT
  Age: 85 Year
  Sex: Female
  Weight: 68.4932 kg

DRUGS (1)
  1. PROMETHAZINE [Suspect]
     Indication: NAUSEA
     Dosage: 12.5MG ONE TIME IV
     Route: 042
     Dates: start: 20080703, end: 20080703

REACTIONS (2)
  - RESPIRATORY ARREST [None]
  - UNRESPONSIVE TO STIMULI [None]
